FAERS Safety Report 8851758 (Version 3)
Quarter: 2013Q1

REPORT INFORMATION
  Report Type: Spontaneous
  Country: US (occurrence: US)
  Receive Date: 20121022
  Receipt Date: 20130227
  Transmission Date: 20140127
  Serious: Yes (Other)
  Sender: FDA-Public Use
  Company Number: US-PFIZER INC-2012257865

PATIENT
  Age: 49 Year
  Sex: Male

DRUGS (4)
  1. ENBREL [Suspect]
     Indication: RHEUMATOID ARTHRITIS
     Dosage: 50 MG, WEEKLY
     Dates: start: 20040818
  2. ZITHROMAX [Suspect]
     Indication: PAIN
     Dosage: UNK
     Dates: start: 201209, end: 201209
  3. LEVAQUIN [Suspect]
     Indication: COUGH
     Dosage: UNK
     Dates: start: 201209, end: 201209
  4. LEVAQUIN [Suspect]
     Indication: RESPIRATORY TRACT INFECTION

REACTIONS (14)
  - Respiratory tract infection [Unknown]
  - Pain [Not Recovered/Not Resolved]
  - Cough [Not Recovered/Not Resolved]
  - Sensory disturbance [Not Recovered/Not Resolved]
  - Tendonitis [Not Recovered/Not Resolved]
  - Joint swelling [Not Recovered/Not Resolved]
  - Influenza [Not Recovered/Not Resolved]
  - Asthenia [Not Recovered/Not Resolved]
  - Nodule [Not Recovered/Not Resolved]
  - Intervertebral disc protrusion [Not Recovered/Not Resolved]
  - Exostosis [Not Recovered/Not Resolved]
  - Arthralgia [Not Recovered/Not Resolved]
  - Rheumatoid factor increased [Not Recovered/Not Resolved]
  - Drug ineffective [Unknown]
